FAERS Safety Report 11151948 (Version 1)
Quarter: 2015Q2

REPORT INFORMATION
  Report Type: Spontaneous
  Country: TN (occurrence: TN)
  Receive Date: 20150601
  Receipt Date: 20150601
  Transmission Date: 20150821
  Serious: Yes (Hospitalization, Other)
  Sender: FDA-Public Use
  Company Number: TN-ABBVIE-15K-160-1393345-00

PATIENT
  Sex: Female
  Weight: 44 kg

DRUGS (3)
  1. HUMIRA [Suspect]
     Active Substance: ADALIMUMAB
     Route: 058
     Dates: start: 20150224
  2. DAONIL [Concomitant]
     Active Substance: GLYBURIDE
     Indication: TYPE 2 DIABETES MELLITUS
     Route: 048
  3. HUMIRA [Suspect]
     Active Substance: ADALIMUMAB
     Indication: CROHN^S DISEASE
     Route: 058
     Dates: start: 201311

REACTIONS (6)
  - Retroperitoneal lymphadenopathy [Unknown]
  - White matter lesion [Unknown]
  - Lymph node tuberculosis [Unknown]
  - Lymphadenopathy mediastinal [Unknown]
  - Seizure [Unknown]
  - Tuberculosis of central nervous system [Unknown]

NARRATIVE: CASE EVENT DATE: 201412
